FAERS Safety Report 5720069-1 (Version None)
Quarter: 2008Q2

REPORT INFORMATION
  Report Type: 
  Country: None (occurrence: None)
  Receive Date: 20080423
  Receipt Date: 20071012
  Transmission Date: 20081010
  Serious: Yes (Life-Threatening, Hospitalization)
  Sender: FDA-Public Use
  Company Number: 245936

PATIENT
  Age: 56 Year
  Sex: Female
  Weight: 82 kg

DRUGS (5)
  1. AVASTIN [Suspect]
     Indication: GLIOBLASTOMA
     Dosage: 930 MG, Q15D, INTRAVENOUS
     Route: 042
     Dates: start: 20070426, end: 20070720
  2. AVASTIN [Suspect]
     Indication: GLIOMA
     Dosage: 930 MG, Q15D, INTRAVENOUS
     Route: 042
     Dates: start: 20070426, end: 20070720
  3. KEPPRA [Concomitant]
  4. DEXAMETHASONE TAB [Concomitant]
  5. ZOFRAN [Concomitant]

REACTIONS (1)
  - GASTROINTESTINAL PERFORATION [None]
